FAERS Safety Report 10276376 (Version 1)
Quarter: 2014Q3

REPORT INFORMATION
  Report Type: Spontaneous
  Country: US (occurrence: US)
  Receive Date: 20140703
  Receipt Date: 20140703
  Transmission Date: 20150326
  Serious: Yes (Other)
  Sender: FDA-Public Use
  Company Number: US-ASTRAZENECA-2014SE46592

PATIENT
  Age: 25 Year
  Sex: Female
  Weight: 49.9 kg

DRUGS (1)
  1. SEROQUEL XR [Suspect]
     Active Substance: QUETIAPINE FUMARATE
     Indication: BIPOLAR DISORDER
     Route: 048
     Dates: start: 201405, end: 20140624

REACTIONS (3)
  - Paralysis [Recovered/Resolved]
  - Dysarthria [Recovered/Resolved]
  - Stupor [Recovered/Resolved]

NARRATIVE: CASE EVENT DATE: 201406
